FAERS Safety Report 5227271-6 (Version None)
Quarter: 2007Q1

REPORT INFORMATION
  Report Type: 
  Country: None (occurrence: None)
  Receive Date: 20070202
  Receipt Date: 20070129
  Transmission Date: 20070707
  Serious: Yes (Other)
  Sender: FDA-Public Use
  Company Number: HQWYE084413AUG03

PATIENT
  Sex: Female
  Weight: 68.1 kg

DRUGS (4)
  1. PREMPRO [Suspect]
     Indication: HORMONE REPLACEMENT THERAPY
     Dosage: UNKNOWN
     Route: 048
     Dates: start: 19970701, end: 19990101
  2. ESTROPIPATE [Suspect]
     Dosage: UNKNOWN
     Dates: start: 19980401, end: 19990901
  3. FLUOXETINE HYDROCHLORIDE [Concomitant]
  4. MEDROXYPROGESTERONE [Suspect]
     Dosage: UNKNOWN
     Dates: start: 19980401, end: 19990901

REACTIONS (16)
  - AORTIC ARTERIOSCLEROSIS [None]
  - ASTHENIA [None]
  - BONE DENSITY DECREASED [None]
  - BREAST CANCER METASTATIC [None]
  - BREAST CANCER STAGE III [None]
  - BREAST CYST [None]
  - BREAST MICROCALCIFICATION [None]
  - HAEMATOCRIT DECREASED [None]
  - LABORATORY TEST ABNORMAL [None]
  - LYMPHOEDEMA [None]
  - METASTASES TO LYMPH NODES [None]
  - NAUSEA [None]
  - OESTROGEN RECEPTOR ASSAY POSITIVE [None]
  - PROGESTERONE RECEPTOR ASSAY POSITIVE [None]
  - RADIATION PNEUMONITIS [None]
  - SPINAL OSTEOARTHRITIS [None]
